FAERS Safety Report 5482542-3 (Version None)
Quarter: 2007Q4

REPORT INFORMATION
  Report Type: 
  Country: None (occurrence: None)
  Receive Date: 20071011
  Receipt Date: 20070629
  Transmission Date: 20080405
  Serious: No
  Sender: FDA-Public Use
  Company Number: A0661033A

PATIENT
  Age: 39 Year
  Sex: Female

DRUGS (8)
  1. TYKERB [Suspect]
     Indication: BREAST CANCER
     Dosage: 1250MG PER DAY
     Route: 048
     Dates: start: 20070602, end: 20070629
  2. XELODA [Concomitant]
  3. KYTRIL [Concomitant]
  4. OXYCONTIN [Concomitant]
  5. LEVOTHYROXINE SODIUM [Concomitant]
  6. COREG [Concomitant]
  7. COUMADIN [Concomitant]
  8. IMODIUM [Concomitant]

REACTIONS (6)
  - ANOREXIA [None]
  - DIARRHOEA [None]
  - NAUSEA [None]
  - STOMACH DISCOMFORT [None]
  - VOMITING [None]
  - WEIGHT DECREASED [None]
